FAERS Safety Report 19472404 (Version 1)
Quarter: 2021Q2

REPORT INFORMATION
  Report Type: Report from Study
  Country: CR (occurrence: CR)
  Receive Date: 20210629
  Receipt Date: 20210629
  Transmission Date: 20210717
  Serious: Yes (Life-Threatening)
  Sender: FDA-Public Use
  Company Number: CR-JNJFOC-20210639626

PATIENT
  Age: 53 Year
  Sex: Female

DRUGS (3)
  1. SPRAVATO [Suspect]
     Active Substance: ESKETAMINE
     Indication: DEPRESSION
     Dates: start: 20210601
  2. TAFIL [ALPRAZOLAM] [Concomitant]
     Route: 048
  3. AMITRIPTYLINE [Concomitant]
     Active Substance: AMITRIPTYLINE
     Route: 048

REACTIONS (7)
  - Logorrhoea [Unknown]
  - Dissociation [Recovered/Resolved]
  - Crying [Unknown]
  - Suicidal ideation [Unknown]
  - General symptom [Unknown]
  - Oxygen saturation decreased [Recovered/Resolved]
  - Anxiety [Recovering/Resolving]

NARRATIVE: CASE EVENT DATE: 20210610
